FAERS Safety Report 7865963-0 (Version None)
Quarter: 2011Q4

REPORT INFORMATION
  Report Type: 
  Country: None (occurrence: None)
  Receive Date: 20111028
  Receipt Date: 20110329
  Transmission Date: 20120403
  Serious: No
  Sender: FDA-Public Use
  Company Number: US-GLAXOSMITHKLINE-A0920441A

PATIENT
  Age: 79 Year
  Sex: Female

DRUGS (7)
  1. AMLODIPINE [Concomitant]
  2. LOSARTAN POTASSIUM [Concomitant]
  3. LEVOTHYROXINE SODIUM [Concomitant]
  4. ADVAIR DISKUS 100/50 [Suspect]
     Dosage: 1PUFF TWICE PER DAY
     Route: 055
     Dates: start: 20080101, end: 20110201
  5. LOVASTATIN [Concomitant]
  6. ADVAIR DISKUS 100/50 [Suspect]
     Indication: ASTHMA
     Dosage: 1PUFF TWICE PER DAY
     Route: 055
     Dates: start: 20070101, end: 20080101
  7. OMEPRAZOLE [Concomitant]

REACTIONS (3)
  - VISUAL IMPAIRMENT [None]
  - DRUG INEFFECTIVE [None]
  - ILL-DEFINED DISORDER [None]
